FAERS Safety Report 9646466 (Version 2)
Quarter: 2013Q4

REPORT INFORMATION
  Report Type: Report from Study
  Country: CA (occurrence: CA)
  Receive Date: 20131025
  Receipt Date: 20131107
  Transmission Date: 20140711
  Serious: Yes (Hospitalization, Other)
  Sender: FDA-Public Use
  Company Number: CA-ABBVIE-13P-028-1159628-00

PATIENT
  Age: 26 Year
  Sex: Female

DRUGS (7)
  1. HUMIRA [Suspect]
     Indication: JUVENILE IDIOPATHIC ARTHRITIS
     Route: 058
     Dates: start: 20091229, end: 20130610
  2. HUMIRA [Suspect]
     Route: 058
     Dates: start: 20130906
  3. IMMUNOGLOBULIN [Concomitant]
     Indication: MYASTHENIA GRAVIS
     Route: 042
     Dates: start: 20130524, end: 201306
  4. CELLCEPT [Concomitant]
     Indication: MYASTHENIA GRAVIS
     Route: 048
     Dates: start: 201208, end: 201305
  5. MESTINON [Concomitant]
     Indication: MYASTHENIA GRAVIS
  6. SYMBICORT [Concomitant]
     Indication: PRODUCT USED FOR UNKNOWN INDICATION
  7. PREDNISONE [Concomitant]
     Indication: PRODUCT USED FOR UNKNOWN INDICATION
     Route: 048

REACTIONS (7)
  - Abasia [Recovering/Resolving]
  - Joint swelling [Recovering/Resolving]
  - Arthralgia [Recovering/Resolving]
  - Staphylococcal bacteraemia [Recovered/Resolved]
  - Arthritis [Recovering/Resolving]
  - Malaise [Recovered/Resolved]
  - Immunosuppression [Unknown]
